FAERS Safety Report 16261563 (Version 1)
Quarter: 2019Q2

REPORT INFORMATION
  Report Type: Spontaneous
  Country: US (occurrence: US)
  Receive Date: 20190501
  Receipt Date: 20190501
  Transmission Date: 20190711
  Serious: No
  Sender: FDA-Public Use
  Company Number: US-SA-2019SA115712

PATIENT
  Age: 12 Year
  Sex: Female

DRUGS (1)
  1. ALLEGRA ALLERGY [Suspect]
     Active Substance: FEXOFENADINE HYDROCHLORIDE
     Dosage: 180 MG
     Dates: start: 20190423

REACTIONS (6)
  - Urticaria [Unknown]
  - Intentional product misuse [Unknown]
  - Intentional overdose [Unknown]
  - Pruritus [Unknown]
  - Ocular hyperaemia [Unknown]
  - Headache [Unknown]
